FAERS Safety Report 9189383 (Version 1)
Quarter: 2013Q1

REPORT INFORMATION
  Report Type: Spontaneous
  Country: US (occurrence: None)
  Receive Date: 20130322
  Receipt Date: 20130322
  Transmission Date: 20140127
  Serious: Yes (Other)
  Sender: FDA-Public Use
  Company Number: TPA2013A02205

PATIENT
  Age: 58 Year
  Sex: Male
  Weight: 93.9 kg

DRUGS (8)
  1. ACTOS (PIOGLITAZONE HYDROCHLORIDE) [Suspect]
     Indication: TYPE 2 DIABETES MELLITUS
     Dates: start: 200005, end: 200009
  2. METFORMIN (METFORMIN) [Concomitant]
  3. GLUCOPHAGE (METFORMIN HYDROCHLORIDE) [Concomitant]
  4. HUMALOG (INSULIN LISPRO) [Concomitant]
  5. AMARYL (GLIMEPIRIDE) [Concomitant]
  6. JANUVIA (SITAGLIPTIN PHOSPHATE) [Concomitant]
  7. BYETTA (EXENATIDE) [Concomitant]
  8. LANTUS ( INSULIN GLARGINE) [Concomitant]

REACTIONS (3)
  - Bladder cancer [None]
  - Pollakiuria [None]
  - Cystitis [None]
